FAERS Safety Report 4980686-3 (Version None)
Quarter: 2006Q2

REPORT INFORMATION
  Report Type: 
  Country: None (occurrence: None)
  Receive Date: 20060424
  Receipt Date: 20050131
  Transmission Date: 20061013
  Serious: Yes (Life-Threatening, Disabling)
  Sender: FDA-Public Use
  Company Number: US-MERCK-0502USA00057

PATIENT
  Age: 49 Year
  Sex: Female
  Weight: 68 kg

DRUGS (17)
  1. VIOXX [Suspect]
     Indication: ARTHRITIS
     Route: 048
     Dates: start: 20020909, end: 20030819
  2. PAXIL [Concomitant]
     Indication: DEPRESSION
     Route: 065
  3. PAXIL [Concomitant]
     Indication: ANXIETY
     Route: 065
  4. ZOLOFT [Concomitant]
     Route: 065
  5. PRILOSEC [Concomitant]
     Route: 065
  6. SEROQUEL [Concomitant]
     Route: 065
  7. ALPRAZOLAM [Concomitant]
     Route: 065
  8. CELEXA [Concomitant]
     Route: 065
  9. FOSAMAX [Concomitant]
     Indication: MENOPAUSE
     Route: 065
  10. VITAMINS (UNSPECIFIED) [Concomitant]
     Route: 065
  11. CLARITIN [Concomitant]
     Route: 065
  12. BENZONATATE [Concomitant]
     Route: 065
  13. NEURONTIN [Concomitant]
     Route: 065
  14. PROTONIX [Concomitant]
     Route: 065
  15. BISACODYL [Concomitant]
     Route: 065
  16. HYDROXYZINE PAMOATE [Concomitant]
     Route: 065
  17. ALLEGRA [Concomitant]
     Route: 065

REACTIONS (16)
  - ANOREXIA [None]
  - ARTHROPATHY [None]
  - COUGH [None]
  - DIFFICULTY IN WALKING [None]
  - DIZZINESS [None]
  - DYSPHONIA [None]
  - EMOTIONAL DISTRESS [None]
  - FATIGUE [None]
  - LOW DENSITY LIPOPROTEIN INCREASED [None]
  - MALAISE [None]
  - MUSCLE SPASMS [None]
  - NERVOUSNESS [None]
  - PALPITATIONS [None]
  - PANIC ATTACK [None]
  - SINUSITIS [None]
  - THROMBOSIS [None]
